FAERS Safety Report 18663740 (Version 1)
Quarter: 2020Q4

REPORT INFORMATION
  Report Type: Spontaneous
  Country: TR (occurrence: TR)
  Receive Date: 20201224
  Receipt Date: 20201224
  Transmission Date: 20210114
  Serious: No
  Sender: FDA-Public Use
  Company Number: TR-LUPIN PHARMACEUTICALS INC.-2020-06819

PATIENT
  Age: 11 Year
  Sex: Male

DRUGS (2)
  1. METRONIDAZOLE. [Suspect]
     Active Substance: METRONIDAZOLE
     Indication: ENCEPHALOPATHY
     Dosage: UNK
     Route: 048
  2. N-ACETYLCYSTEINE [Suspect]
     Active Substance: ACETYLCYSTEINE
     Indication: ENCEPHALOPATHY
     Dosage: UNK
     Route: 048

REACTIONS (2)
  - Abdominal discomfort [Unknown]
  - Abdominal pain [Unknown]
